FAERS Safety Report 5827585-2 (Version None)
Quarter: 2008Q3

REPORT INFORMATION
  Report Type: 
  Country: None (occurrence: None)
  Receive Date: 20080730
  Receipt Date: 20080723
  Transmission Date: 20090109
  Serious: Yes (Other)
  Sender: FDA-Public Use
  Company Number: US-JNJCH-2008019298

PATIENT
  Age: 28 Year
  Weight: 204.1 kg

DRUGS (1)
  1. BENADRYL ALLERGY QUICK DISSOLVE STRIPS [Suspect]
     Indication: PRURITUS
     Dosage: TEXT:2 STRIPS 1 DAY
     Route: 048
     Dates: start: 20080722, end: 20080722

REACTIONS (1)
  - HYPERSENSITIVITY [None]
